FAERS Safety Report 17632585 (Version 1)
Quarter: 2020Q2

REPORT INFORMATION
  Report Type: Report from Study
  Country: US (occurrence: US)
  Receive Date: 20200406
  Receipt Date: 20200406
  Transmission Date: 20200713
  Serious: Yes (Life-Threatening, Other)
  Sender: FDA-Public Use
  Company Number: US-JNJFOC-JRFUSA2000009391

PATIENT
  Age: 3 Year
  Sex: Male
  Weight: 15.3 kg

DRUGS (5)
  1. CISAPRIDE [Suspect]
     Active Substance: CISAPRIDE
     Route: 048
  2. BACTRIM [Concomitant]
     Active Substance: SULFAMETHOXAZOLE\TRIMETHOPRIM
     Indication: PROPHYLAXIS
     Route: 048
  3. CISAPRIDE [Suspect]
     Active Substance: CISAPRIDE
     Indication: OBSTRUCTION
     Route: 048
     Dates: start: 20001103, end: 20001116
  4. FER DROPS [Concomitant]
     Indication: IRON DEFICIENCY ANAEMIA
     Route: 048
  5. LACTOBACILLUS ACIDOPHILUS\LACTOBACILLUS BULGARICUS [Concomitant]
     Active Substance: LACTOBACILLUS ACIDOPHILUS\LACTOBACILLUS DELBRUECKII SUBSP. BULGARICUS
     Indication: DIARRHOEA
     Route: 048

REACTIONS (1)
  - Electrocardiogram QT prolonged [Recovered/Resolved]

NARRATIVE: CASE EVENT DATE: 20001108
